FAERS Safety Report 21596192 (Version 1)
Quarter: 2022Q4

REPORT INFORMATION
  Report Type: Spontaneous
  Country: FR (occurrence: FR)
  Receive Date: 20221115
  Receipt Date: 20221115
  Transmission Date: 20230112
  Serious: Yes (Other)
  Sender: FDA-Public Use
  Company Number: FR-ORPHANEU-2022005526

PATIENT

DRUGS (4)
  1. DACTINOMYCIN [Suspect]
     Active Substance: DACTINOMYCIN
     Indication: Alveolar rhabdomyosarcoma
     Dosage: SIX COURSES WITH AN INTERVAL OF 3 WEEKS BETWEEN EACH COURSE
  2. DACTINOMYCIN [Suspect]
     Active Substance: DACTINOMYCIN
     Indication: Alveolar rhabdomyosarcoma
     Dosage: SIX COURSES WITH AN INTERVAL OF 3 WEEKS BETWEEN EACH COURSE
  3. IFOSFAMIDE [Suspect]
     Active Substance: IFOSFAMIDE
     Indication: Alveolar rhabdomyosarcoma
     Dosage: SIX COURSES WITH AN INTERVAL OF 3 WEEKS BETWEEN EACH COURSE
  4. VINCRISTINE [Suspect]
     Active Substance: VINCRISTINE
     Indication: Alveolar rhabdomyosarcoma
     Dosage: SIX COURSES WITH AN INTERVAL OF 3 WEEKS BETWEEN EACH COURSE

REACTIONS (2)
  - Mallory-Weiss syndrome [Unknown]
  - Dyspepsia [Unknown]
